FAERS Safety Report 4504750-8 (Version None)
Quarter: 2004Q4

REPORT INFORMATION
  Report Type: 
  Country: None (occurrence: None)
  Receive Date: 20041118
  Receipt Date: 20041022
  Transmission Date: 20050328
  Serious: Yes (Life-Threatening, Hospitalization, Disabling)
  Sender: FDA-Public Use
  Company Number: US-MERCK-0410USA03573

PATIENT
  Age: 17 Year
  Sex: Female

DRUGS (2)
  1. VIOXX [Suspect]
     Indication: LIMB INJURY
     Route: 048
     Dates: start: 20040913, end: 20040930
  2. SINGULAIR [Concomitant]
     Route: 048

REACTIONS (2)
  - ASTHMA [None]
  - CONDITION AGGRAVATED [None]
